FAERS Safety Report 4923209-7 (Version None)
Quarter: 2006Q1

REPORT INFORMATION
  Report Type: 
  Country: None (occurrence: None)
  Receive Date: 20060127
  Receipt Date: 20051118
  Transmission Date: 20060701
  Serious: Yes (Other)
  Sender: FDA-Public Use
  Company Number: 2005136289

PATIENT
  Age: 65 Year
  Sex: Female
  Weight: 86.637 kg

DRUGS (8)
  1. LYRICA [Suspect]
     Indication: NEURALGIA
     Dosage: 150 MG (50 MG, 3 IN 1 D), ORAL
     Route: 048
     Dates: start: 20050926, end: 20050927
  2. LYRICA [Suspect]
     Indication: NEUROPATHY PERIPHERAL
     Dosage: 150 MG (50 MG, 3 IN 1 D), ORAL
     Route: 048
     Dates: start: 20050926, end: 20050927
  3. LORAZEPAM [Concomitant]
  4. OXYCODONE [Concomitant]
  5. ATIVAN [Concomitant]
  6. FLEXERIL [Concomitant]
  7. AMITRIPTYLINE HCL [Concomitant]
  8. CALTRATE+SOY (CALCIUM CARBONATE, ERGOCALCIFEROL, SOY ISOFLAVONES) [Concomitant]

REACTIONS (6)
  - CONFUSIONAL STATE [None]
  - DIZZINESS [None]
  - DYSARTHRIA [None]
  - FEELING DRUNK [None]
  - PAIN [None]
  - SOMNOLENCE [None]
